FAERS Safety Report 17509668 (Version 1)
Quarter: 2020Q1

REPORT INFORMATION
  Report Type: Spontaneous
  Country: US (occurrence: US)
  Receive Date: 20200306
  Receipt Date: 20200306
  Transmission Date: 20200409
  Serious: Yes (Hospitalization)
  Sender: FDA-Public Use
  Company Number: US-VERTEX PHARMACEUTICALS-2020-004359

PATIENT
  Age: 50 Year
  Sex: Female

DRUGS (28)
  1. URSODIOL. [Concomitant]
     Active Substance: URSODIOL
  2. BUDESONIDE. [Concomitant]
     Active Substance: BUDESONIDE
  3. PULMICORT TURBUHALER [Concomitant]
     Active Substance: BUDESONIDE
  4. CAYSTON [Concomitant]
     Active Substance: AZTREONAM
  5. AJOVY [Concomitant]
     Active Substance: FREMANEZUMAB-VFRM
  6. OMEPRAZOLE. [Concomitant]
     Active Substance: OMEPRAZOLE
  7. LORATADINE. [Concomitant]
     Active Substance: LORATADINE
  8. MAGNESIUM OXIDE. [Concomitant]
     Active Substance: MAGNESIUM OXIDE
  9. ONDANSETRON [Concomitant]
     Active Substance: ONDANSETRON
  10. FAMOTIDINE. [Concomitant]
     Active Substance: FAMOTIDINE
  11. OXYCODONE [Concomitant]
     Active Substance: OXYCODONE
  12. POLYETHYLENE GLYCOL [Concomitant]
     Active Substance: POLYETHYLENE GLYCOLS
  13. MELATONIN [Concomitant]
     Active Substance: MELATONIN
  14. ATROVENT [Concomitant]
     Active Substance: IPRATROPIUM BROMIDE
  15. DUREZOL [Concomitant]
     Active Substance: DIFLUPREDNATE
  16. VITAMIN A [RETINOL] [Concomitant]
     Active Substance: RETINOL
  17. VENTOLINE [SALBUTAMOL] [Concomitant]
     Active Substance: ALBUTEROL SULFATE
  18. OYSTER SHELL [Concomitant]
     Active Substance: OSTREA EDULIS SHELL
  19. CYCLOBENZAPRINE. [Concomitant]
     Active Substance: CYCLOBENZAPRINE
  20. PROLENSA [Concomitant]
     Active Substance: BROMFENAC SODIUM
  21. AZITHROMYCIN ANHYDROUS. [Concomitant]
     Active Substance: AZITHROMYCIN ANHYDROUS
  22. PREGABALIN. [Concomitant]
     Active Substance: PREGABALIN
  23. TRIKAFTA [Suspect]
     Active Substance: ELEXACAFTOR\IVACAFTOR\TEZACAFTOR
     Indication: CYSTIC FIBROSIS
     Dosage: 2 TAB (ELEXACAFTOR 100MG/ TEZACAFTOR 50MG/ IVACAFTOR 75MG) AM, 1 TAB (IVACAFTOR 150MG) PM
     Route: 048
     Dates: start: 20191118
  24. DOXYCYCLINE. [Concomitant]
     Active Substance: DOXYCYCLINE
  25. OFLOXACIN. [Concomitant]
     Active Substance: OFLOXACIN
  26. CREON [Concomitant]
     Active Substance: PANCRELIPASE AMYLASE\PANCRELIPASE LIPASE\PANCRELIPASE PROTEASE
  27. COLISTIMETHATE [COLISTIMETHATE SODIUM] [Concomitant]
     Active Substance: COLISTIMETHATE SODIUM
  28. PREDNISONE. [Concomitant]
     Active Substance: PREDNISONE

REACTIONS (1)
  - Infective pulmonary exacerbation of cystic fibrosis [Unknown]

NARRATIVE: CASE EVENT DATE: 202002
